FAERS Safety Report 5024453-3 (Version None)
Quarter: 2006Q2

REPORT INFORMATION
  Report Type: 
  Country: None (occurrence: None)
  Receive Date: 20060613
  Receipt Date: 20060125
  Transmission Date: 20061013
  Serious: Yes (Hospitalization)
  Sender: FDA-Public Use
  Company Number: FR-BRISTOL-MYERS SQUIBB COMPANY-13260153

PATIENT
  Sex: Male

DRUGS (2)
  1. REYATAZ [Suspect]
     Indication: HIV INFECTION
     Dosage: STOPPED AND REINTRODUCED AT 300 MG/DAY (DATES NOT SPECIFIED)
     Route: 048
  2. NORVIR [Concomitant]
     Indication: HIV INFECTION

REACTIONS (2)
  - HAEMATEMESIS [None]
  - MELAENA [None]
